FAERS Safety Report 9619780 (Version 1)
Quarter: 2013Q4

REPORT INFORMATION
  Report Type: Report from Study
  Country: IE (occurrence: IE)
  Receive Date: 20131014
  Receipt Date: 20131014
  Transmission Date: 20140711
  Serious: Yes (Death)
  Sender: FDA-Public Use
  Company Number: IE-GLAXOSMITHKLINE-B0929925A

PATIENT
  Sex: Male

DRUGS (10)
  1. VOTRIENT [Suspect]
     Indication: PRODUCT USED FOR UNKNOWN INDICATION
     Dosage: 800MG PER DAY
     Route: 048
     Dates: start: 20130910
  2. PULMICORT [Concomitant]
  3. ZOTON [Concomitant]
  4. SIMVASTATIN [Concomitant]
  5. IMDUR [Concomitant]
  6. MAXOLON [Concomitant]
  7. TILDIEM RETARD [Concomitant]
  8. ASPIRIN [Concomitant]
  9. FRUSEMIDE [Concomitant]
  10. DEXAMETHASONE [Concomitant]

REACTIONS (1)
  - Death [Fatal]
